FAERS Safety Report 9350337 (Version 1)
Quarter: 2013Q2

REPORT INFORMATION
  Report Type: Spontaneous
  Country: US (occurrence: None)
  Receive Date: 20130613
  Receipt Date: 20130613
  Transmission Date: 20140414
  Serious: Yes (Other)
  Sender: FDA-Public Use
  Company Number: None

PATIENT
  Sex: Male
  Weight: 73.26 kg

DRUGS (1)
  1. LAMOTRIGINE 300MG [Suspect]
     Indication: CONVULSION
     Route: 048
     Dates: start: 2006

REACTIONS (3)
  - Convulsion [None]
  - Therapeutic response unexpected with drug substitution [None]
  - Product substitution issue [None]
